FAERS Safety Report 14686660 (Version 1)
Quarter: 2018Q1

REPORT INFORMATION
  Report Type: Spontaneous
  Country: PK (occurrence: PK)
  Receive Date: 20180327
  Receipt Date: 20180327
  Transmission Date: 20180509
  Serious: Yes (Other)
  Sender: FDA-Public Use
  Company Number: PK-SA-2018SA082357

PATIENT
  Age: 60 Year
  Sex: Female

DRUGS (1)
  1. DAONIL [Suspect]
     Active Substance: GLYBURIDE
     Indication: HYPERGLYCAEMIA
     Route: 048
     Dates: start: 2013

REACTIONS (5)
  - Urinary tract infection [Unknown]
  - Hyperglycaemia [Not Recovered/Not Resolved]
  - Vaginal infection [Unknown]
  - Gangrene [Not Recovered/Not Resolved]
  - Neuropathy peripheral [Unknown]

NARRATIVE: CASE EVENT DATE: 2015
